FAERS Safety Report 10842524 (Version 1)
Quarter: 2015Q1

REPORT INFORMATION
  Report Type: Spontaneous
  Country: US (occurrence: US)
  Receive Date: 20150220
  Receipt Date: 20150220
  Transmission Date: 20150721
  Serious: No
  Sender: FDA-Public Use
  Company Number: US-ABBVIE-14P-163-1278789-00

PATIENT
  Age: 39 Year
  Sex: Male
  Weight: 124.85 kg

DRUGS (2)
  1. HUMIRA [Suspect]
     Active Substance: ADALIMUMAB
     Indication: PSORIASIS
     Dates: start: 20140823, end: 20140823
  2. HUMIRA [Suspect]
     Active Substance: ADALIMUMAB
     Dates: start: 20140829

REACTIONS (5)
  - Drug dose omission [Unknown]
  - Blood glucose abnormal [Not Recovered/Not Resolved]
  - Pruritus generalised [Recovered/Resolved]
  - Device issue [Unknown]
  - Device use error [Unknown]

NARRATIVE: CASE EVENT DATE: 20140823
